FAERS Safety Report 9432260 (Version 1)
Quarter: 2013Q3

REPORT INFORMATION
  Report Type: Spontaneous
  Country: US (occurrence: None)
  Receive Date: 20130730
  Receipt Date: 20130730
  Transmission Date: 20140515
  Serious: Yes (Death)
  Sender: FDA-Public Use
  Company Number: None

PATIENT
  Age: 44 Year
  Sex: Female

DRUGS (4)
  1. STIVARGA 40MG BAYER [Suspect]
     Indication: COLON CANCER
     Dosage: 160MG  QDX21  PO
     Route: 048
     Dates: start: 20130404, end: 20130719
  2. MORPHINE [Concomitant]
  3. LORAZEPAM [Concomitant]
  4. NORVASC [Concomitant]

REACTIONS (1)
  - Death [None]
